FAERS Safety Report 18533995 (Version 1)
Quarter: 2020Q4

REPORT INFORMATION
  Report Type: Report from Study
  Country: CA (occurrence: CA)
  Receive Date: 20201123
  Receipt Date: 20201123
  Transmission Date: 20210114
  Serious: Yes (Death, Hospitalization)
  Sender: FDA-Public Use
  Company Number: CA-JNJFOC-20201117452

PATIENT
  Age: 83 Year
  Sex: Female

DRUGS (8)
  1. ADALAT [Concomitant]
     Active Substance: NIFEDIPINE
  2. ACCUPRIL [Concomitant]
     Active Substance: QUINAPRIL HYDROCHLORIDE
  3. ROSUVASTATIN. [Concomitant]
     Active Substance: ROSUVASTATIN
  4. BOSENTAN. [Suspect]
     Active Substance: BOSENTAN
     Indication: PULMONARY ARTERIAL HYPERTENSION
     Route: 065
     Dates: start: 20160803
  5. ATENOLOL. [Concomitant]
     Active Substance: ATENOLOL
  6. ADCIRCA [Concomitant]
     Active Substance: TADALAFIL
  7. BOSENTAN. [Suspect]
     Active Substance: BOSENTAN
     Route: 065
     Dates: start: 20160803
  8. WARFARIN [Concomitant]
     Active Substance: WARFARIN

REACTIONS (3)
  - Liver disorder [Unknown]
  - Death [Fatal]
  - Malaise [Unknown]

NARRATIVE: CASE EVENT DATE: 20201029
